FAERS Safety Report 7716929-2 (Version None)
Quarter: 2011Q3

REPORT INFORMATION
  Report Type: 
  Country: None (occurrence: None)
  Receive Date: 20110829
  Receipt Date: 20110825
  Transmission Date: 20111222
  Serious: Yes (Other)
  Sender: FDA-Public Use
  Company Number: US-ABBOTT-10P-163-0663197-00

PATIENT
  Sex: Female
  Weight: 108.96 kg

DRUGS (4)
  1. ADVAIR DISKUS 100/50 [Concomitant]
     Indication: ASTHMA
  2. HUMIRA [Suspect]
     Dates: start: 20110824
  3. HUMIRA [Suspect]
     Dates: start: 20100101, end: 20110201
  4. HUMIRA [Suspect]
     Indication: PSORIATIC ARTHROPATHY
     Dates: start: 20100404, end: 20100701

REACTIONS (6)
  - WHEEZING [None]
  - CHRONIC SINUSITIS [None]
  - COUGH [None]
  - INFLUENZA LIKE ILLNESS [None]
  - NASAL SEPTUM DEVIATION [None]
  - SINUS DISORDER [None]
